FAERS Safety Report 12741062 (Version 1)
Quarter: 2016Q3

REPORT INFORMATION
  Report Type: Spontaneous
  Country: US (occurrence: US)
  Receive Date: 20160914
  Receipt Date: 20160914
  Transmission Date: 20161109
  Serious: Yes (Other)
  Sender: FDA-Public Use
  Company Number: US-TEVA-662197USA

PATIENT
  Sex: Male
  Weight: 78.09 kg

DRUGS (2)
  1. PANTOPRAZOLE [Suspect]
     Active Substance: PANTOPRAZOLE SODIUM
     Route: 065
     Dates: start: 2015
  2. SOLMACK [Suspect]
     Active Substance: HERBALS
     Route: 065

REACTIONS (7)
  - Hypoaesthesia oral [Unknown]
  - Urticaria [Unknown]
  - Rash [Unknown]
  - Pruritus [Unknown]
  - Skin discolouration [Unknown]
  - Throat tightness [Unknown]
  - Drug ineffective [Unknown]
